FAERS Safety Report 23686290 (Version 1)
Quarter: 2024Q1

REPORT INFORMATION
  Report Type: Spontaneous
  Country: US (occurrence: US)
  Receive Date: 20240329
  Receipt Date: 20240329
  Transmission Date: 20240410
  Serious: Yes (Hospitalization)
  Sender: FDA-Public Use
  Company Number: US-BAYER-2024A044702

PATIENT
  Age: 62 Year
  Sex: Male

DRUGS (13)
  1. RIVAROXABAN [Suspect]
     Active Substance: RIVAROXABAN
     Indication: Product used for unknown indication
     Route: 048
  2. ADEMPAS [Suspect]
     Active Substance: RIOCIGUAT
     Indication: Pulmonary arterial hypertension
     Dosage: UNK
     Route: 048
     Dates: start: 20240226
  3. ADEMPAS [Suspect]
     Active Substance: RIOCIGUAT
     Indication: Pulmonary arterial hypertension
     Dosage: 2.5 MG, TID
     Route: 048
  4. ATORVASTATIN CALCIUM [Concomitant]
     Active Substance: ATORVASTATIN CALCIUM
  5. HYDROCHLOROTHIAZIDE [Concomitant]
     Active Substance: HYDROCHLOROTHIAZIDE
  6. AMLODIPINE BESYLATE [Concomitant]
     Active Substance: AMLODIPINE BESYLATE
  7. ALBUTEROL SULFATE [Concomitant]
     Active Substance: ALBUTEROL SULFATE
  8. SPIRONOLACTONE [Concomitant]
     Active Substance: SPIRONOLACTONE
  9. OXYGEN [Concomitant]
     Active Substance: OXYGEN
  10. DIPHENHYDRAMINE HYDROCHLORIDE [Concomitant]
     Active Substance: DIPHENHYDRAMINE HYDROCHLORIDE
  11. FERROUS SULFATE [Concomitant]
     Active Substance: FERROUS SULFATE
  12. TYLENOL [Concomitant]
     Active Substance: ACETAMINOPHEN
  13. ASPIRIN [Concomitant]
     Active Substance: ASPIRIN

REACTIONS (3)
  - Intra-abdominal haemorrhage [Unknown]
  - Haemoglobin decreased [Unknown]
  - Hypotension [Unknown]

NARRATIVE: CASE EVENT DATE: 20240301
